FAERS Safety Report 7478436-4 (Version None)
Quarter: 2011Q2

REPORT INFORMATION
  Report Type: 
  Country: None (occurrence: None)
  Receive Date: 20110513
  Receipt Date: 20100717
  Transmission Date: 20111010
  Serious: No
  Sender: FDA-Public Use
  Company Number: US-PFIZER INC-2010089449

PATIENT
  Sex: Male

DRUGS (5)
  1. ADRENALIN IN OIL INJ [Concomitant]
     Indication: CARDIAC DISORDER
     Dosage: UNK
  2. LISINOPRIL [Concomitant]
     Indication: CARDIAC DISORDER
     Dosage: UNK
  3. CELEBREX [Suspect]
     Indication: ARTHRITIS
     Dosage: UNK
     Route: 048
     Dates: start: 20100701
  4. LOVASTATIN [Concomitant]
     Indication: CARDIAC DISORDER
     Dosage: UNK
  5. TOPROL-XL [Concomitant]
     Indication: CARDIAC DISORDER
     Dosage: UNK

REACTIONS (2)
  - CHEST DISCOMFORT [None]
  - PAIN [None]
